FAERS Safety Report 10202528 (Version 2)
Quarter: 2014Q2

REPORT INFORMATION
  Report Type: Report from Study
  Country: US (occurrence: US)
  Receive Date: 20140528
  Receipt Date: 20140528
  Transmission Date: 20141212
  Serious: Yes (Hospitalization)
  Sender: FDA-Public Use
  Company Number: US-SA-CAMP-1002031

PATIENT
  Age: 76 Year
  Sex: Male
  Weight: 98.41 kg

DRUGS (2)
  1. ALEMTUZUMAB [Suspect]
     Indication: CHRONIC LYMPHOCYTIC LEUKAEMIA
     Dosage: 30 MG ON DAYS 1, 3, 5, AND 8 OF CYCLE
     Route: 042
     Dates: start: 20110815, end: 20110926
  2. ALEMTUZUMAB [Suspect]
     Indication: B-CELL SMALL LYMPHOCYTIC LYMPHOMA
     Dosage: 30 MG ON DAYS 1, 3, 5, AND 8 OF CYCLE
     Route: 042
     Dates: start: 20110815, end: 20110926

REACTIONS (3)
  - Lymphadenopathy [Recovered/Resolved]
  - Pain [Recovered/Resolved]
  - Chronic lymphocytic leukaemia [Unknown]
